FAERS Safety Report 7087230-8 (Version None)
Quarter: 2010Q4

REPORT INFORMATION
  Report Type: 
  Country: None (occurrence: None)
  Receive Date: 20101107
  Receipt Date: 20101004
  Transmission Date: 20110411
  Serious: Yes (Hospitalization, Other)
  Sender: FDA-Public Use
  Company Number: PHHO2008DE08018

PATIENT
  Sex: Male
  Weight: 74 kg

DRUGS (4)
  1. SANDIMMUNE [Suspect]
     Dosage: UNK
  2. SIMULECT [Suspect]
     Dosage: 20MG/ONCE SINGLE
     Route: 042
     Dates: start: 20080418, end: 20080418
  3. NO TREATMENT RECEIVED NOMED [Suspect]
     Indication: LIVER TRANSPLANT
  4. METHYLPREDNISOLONE [Concomitant]
     Indication: IMMUNOSUPPRESSION
     Dosage: UNK
     Dates: start: 20080613

REACTIONS (3)
  - ALANINE AMINOTRANSFERASE INCREASED [None]
  - ASPARTATE AMINOTRANSFERASE INCREASED [None]
  - HEPATITIS C [None]
